FAERS Safety Report 8473317-1 (Version None)
Quarter: 2012Q2

REPORT INFORMATION
  Report Type: 
  Country: None (occurrence: None)
  Receive Date: 20120628
  Receipt Date: 20120615
  Transmission Date: 20120825
  Serious: Yes (Other)
  Sender: FDA-Public Use
  Company Number: CO-AMGEN-COLSP2011068837

PATIENT
  Age: 65 Year
  Sex: Female

DRUGS (6)
  1. GEMFIBROZIL [Concomitant]
     Dosage: UNK
  2. LOVASTATIN [Concomitant]
     Dosage: UNK
  3. METFORMIN HCL [Concomitant]
     Dosage: UNK
  4. ENBREL [Suspect]
     Indication: PSORIASIS
     Dosage: 50 MG, WEEKLY
     Route: 058
     Dates: start: 20110624
  5. LOSARTAN POTASSIUM [Concomitant]
     Dosage: UNK
  6. OMEPRAZOLE [Concomitant]
     Dosage: UNK

REACTIONS (3)
  - CARDIOVASCULAR DISORDER [None]
  - CONDITION AGGRAVATED [None]
  - INJECTION SITE PAIN [None]
